FAERS Safety Report 4526896-0 (Version None)
Quarter: 2004Q4

REPORT INFORMATION
  Report Type: 
  Country: None (occurrence: None)
  Receive Date: 20041213
  Receipt Date: 20041129
  Transmission Date: 20050328
  Serious: Yes (Hospitalization)
  Sender: FDA-Public Use
  Company Number: 6011856F

PATIENT
  Sex: Male

DRUGS (3)
  1. NIASPAN [Suspect]
     Dosage: 750 MG PO
     Route: 048
  2. CARVEDILOL [Concomitant]
  3. TELMISARTAN [Concomitant]

REACTIONS (1)
  - VISUAL DISTURBANCE [None]
